FAERS Safety Report 15571714 (Version 1)
Quarter: 2018Q4

REPORT INFORMATION
  Report Type: Report from Study
  Country: CA (occurrence: CA)
  Receive Date: 20181031
  Receipt Date: 20181031
  Transmission Date: 20190205
  Serious: Yes (Other)
  Sender: FDA-Public Use
  Company Number: CA-MYLANLABS-2018M1080561

PATIENT

DRUGS (2)
  1. CYTARABINE. [Concomitant]
     Active Substance: CYTARABINE
     Indication: ACUTE MYELOID LEUKAEMIA
     Dosage: 1 G/M2 AS A 2 HOUR INFUSION FOR 5 CONSECUTIVE DAYS BETWEEN DAYS 6 AND 10
     Route: 050
  2. THIORIDAZINE [Suspect]
     Active Substance: THIORIDAZINE
     Indication: ACUTE MYELOID LEUKAEMIA
     Dosage: FOR 21 CONSECUTIVE DAYS (DOSE LEVEL III)
     Route: 048

REACTIONS (1)
  - Depressed level of consciousness [Unknown]
